FAERS Safety Report 17926877 (Version 2)
Quarter: 2020Q3

REPORT INFORMATION
  Report Type: Spontaneous
  Country: IE (occurrence: IE)
  Receive Date: 20200623
  Receipt Date: 20200701
  Transmission Date: 20201103
  Serious: Yes (Hospitalization)
  Sender: FDA-Public Use
  Company Number: IE-ROCHE-2621719

PATIENT
  Age: 62 Year
  Sex: Male

DRUGS (4)
  1. SOMATROPIN. [Suspect]
     Active Substance: SOMATROPIN
     Indication: MUSCLE BUILDING THERAPY
     Route: 065
  2. SOMATROPIN. [Suspect]
     Active Substance: SOMATROPIN
     Indication: LIBIDO DISORDER
  3. TESTOSTERONE. [Suspect]
     Active Substance: TESTOSTERONE
     Indication: MUSCLE BUILDING THERAPY
     Route: 065
  4. TESTOSTERONE. [Suspect]
     Active Substance: TESTOSTERONE
     Indication: LIBIDO DISORDER

REACTIONS (3)
  - Drug abuse [Unknown]
  - Hyperglycaemic hyperosmolar nonketotic syndrome [Unknown]
  - Prescription drug used without a prescription [Unknown]
